FAERS Safety Report 15518806 (Version 2)
Quarter: 2019Q2

REPORT INFORMATION
  Report Type: Spontaneous
  Country: US (occurrence: US)
  Receive Date: 20181017
  Receipt Date: 20190628
  Transmission Date: 20190711
  Serious: Yes (Other)
  Sender: FDA-Public Use
  Company Number: US-ELI_LILLY_AND_COMPANY-US201810006034

PATIENT

DRUGS (4)
  1. VIAGRA [Suspect]
     Active Substance: SILDENAFIL CITRATE
     Dosage: 100 MG, PRN
     Route: 065
     Dates: start: 20140116, end: 20160831
  2. CIALIS [Suspect]
     Active Substance: TADALAFIL
     Indication: ERECTILE DYSFUNCTION
     Dosage: 10 MG, PRN
     Route: 065
     Dates: start: 20090429, end: 20100301
  3. VIAGRA [Suspect]
     Active Substance: SILDENAFIL CITRATE
     Indication: ERECTILE DYSFUNCTION
     Dosage: 100 MG, PRN
     Route: 065
     Dates: start: 20081117, end: 20090429
  4. VIAGRA [Suspect]
     Active Substance: SILDENAFIL CITRATE
     Dosage: 100 MG, PRN
     Route: 065
     Dates: start: 20100307, end: 20130502

REACTIONS (4)
  - Vertigo [Recovered/Resolved]
  - Parkinson^s disease [Unknown]
  - Malignant melanoma stage II [Unknown]
  - Malignant melanoma stage II [Unknown]

NARRATIVE: CASE EVENT DATE: 20110520
